FAERS Safety Report 6635065-X (Version None)
Quarter: 2010Q1

REPORT INFORMATION
  Report Type: 
  Country: None (occurrence: None)
  Receive Date: 20100312
  Receipt Date: 20100312
  Transmission Date: 20100710
  Serious: Yes (Other)
  Sender: FDA-Public Use
  Company Number: None

PATIENT
  Sex: Female
  Weight: 61.2356 kg

DRUGS (1)
  1. ACTONEL [Suspect]
     Dosage: 1 WEEKLY
     Dates: start: 20000601, end: 20100301

REACTIONS (3)
  - FALL [None]
  - FEMUR FRACTURE [None]
  - NERVE COMPRESSION [None]
